FAERS Safety Report 26083676 (Version 1)
Quarter: 2025Q4

REPORT INFORMATION
  Report Type: Spontaneous
  Country: IN (occurrence: IN)
  Receive Date: 20251124
  Receipt Date: 20251124
  Transmission Date: 20260118
  Serious: Yes (Death)
  Sender: AMGEN
  Company Number: IN-AMGEN-INDSP2025230035

PATIENT
  Age: 40 Year
  Sex: Female

DRUGS (14)
  1. XGEVA [Suspect]
     Active Substance: DENOSUMAB
     Indication: Metaplastic breast carcinoma
     Dosage: 120 MILLIGRAM, Q4WK
     Route: 058
  2. DOCETAXEL [Concomitant]
     Active Substance: DOCETAXEL
     Dosage: 75 MILLIGRAM/SQ. METER, Q3WK
     Route: 040
  3. TENELIGLIPTIN [Concomitant]
     Active Substance: TENELIGLIPTIN
     Dosage: 20 MILLIGRAM, BID
     Route: 048
  4. METFORMIN [Concomitant]
     Active Substance: METFORMIN HYDROCHLORIDE
     Dosage: 500 MILLIGRAM, BID
     Route: 048
  5. ZOLEDRONIC ACID [Concomitant]
     Active Substance: ZOLEDRONIC ACID
     Dosage: UNK
     Dates: start: 202201, end: 202201
  6. FLUOROURACIL [Concomitant]
     Active Substance: FLUOROURACIL
     Dosage: 500 MILLIGRAM/SQ. METER, Q3WK
     Route: 040
  7. DOXORUBICIN [Concomitant]
     Active Substance: DOXORUBICIN
     Dosage: 50 MILLIGRAM/SQ. METER, Q3WK
     Route: 040
  8. CYCLOPHOSPHAMIDE [Concomitant]
     Active Substance: CYCLOPHOSPHAMIDE
     Dosage: 500 MILLIGRAM/SQ. METER, Q3WK
     Route: 040
  9. PACLITAXEL [Concomitant]
     Active Substance: PACLITAXEL
     Dosage: 175 MILLIGRAM/SQ. METER, Q3WK
     Route: 040
  10. TAMOXIFEN [Concomitant]
     Active Substance: TAMOXIFEN
     Dosage: 20 MILLIGRAM, QD
     Route: 048
     Dates: start: 201801
  11. LEUPROLIDE [Concomitant]
     Active Substance: LEUPROLIDE
     Dosage: 11.25 MILLIGRAM, Q3MO
     Route: 030
  12. LETROZOLE [Concomitant]
     Active Substance: LETROZOLE
     Route: 048
  13. PALBOCICLIB [Concomitant]
     Active Substance: PALBOCICLIB
     Dosage: 125 MILLIGRAM, QD
     Route: 048
     Dates: start: 202301
  14. ADO-TRASTUZUMAB EMTANSINE [Concomitant]
     Active Substance: ADO-TRASTUZUMAB EMTANSINE
     Dosage: 3.6 MILLIGRAM/KILOGRAM, Q3WK
     Route: 040

REACTIONS (1)
  - Metaplastic breast carcinoma [Fatal]
